FAERS Safety Report 11223095 (Version 2)
Quarter: 2015Q3

REPORT INFORMATION
  Report Type: Spontaneous
  Country: US (occurrence: US)
  Receive Date: 20150626
  Receipt Date: 20150914
  Transmission Date: 20151125
  Serious: Yes (Hospitalization, Other)
  Sender: FDA-Public Use
  Company Number: US-CELGENE-USA-2015063773

PATIENT
  Age: 70 Year
  Sex: Male

DRUGS (11)
  1. VALACYCLOVIR [Concomitant]
     Active Substance: VALACYCLOVIR HYDROCHLORIDE
     Indication: PRODUCT USED FOR UNKNOWN INDICATION
     Route: 065
  2. GEMFIBROZIL. [Concomitant]
     Active Substance: GEMFIBROZIL
     Indication: PRODUCT USED FOR UNKNOWN INDICATION
     Route: 065
  3. LORTAB [Concomitant]
     Active Substance: ACETAMINOPHEN\HYDROCODONE BITARTRATE
     Indication: PRODUCT USED FOR UNKNOWN INDICATION
     Route: 065
  4. REVLIMID [Suspect]
     Active Substance: LENALIDOMIDE
     Indication: PLASMA CELL MYELOMA
     Route: 048
     Dates: start: 201402
  5. REVLIMID [Suspect]
     Active Substance: LENALIDOMIDE
     Route: 048
     Dates: start: 201411, end: 2015
  6. ISONIAZID. [Concomitant]
     Active Substance: ISONIAZID
     Indication: PRODUCT USED FOR UNKNOWN INDICATION
     Route: 065
  7. ASPIRIN. [Concomitant]
     Active Substance: ASPIRIN
     Indication: PRODUCT USED FOR UNKNOWN INDICATION
     Route: 065
  8. REVLIMID [Suspect]
     Active Substance: LENALIDOMIDE
     Route: 048
     Dates: start: 201404, end: 201406
  9. AMLODIPINE [Concomitant]
     Active Substance: AMLODIPINE BESYLATE
     Indication: PRODUCT USED FOR UNKNOWN INDICATION
     Route: 065
  10. PYRIDOXINE [Concomitant]
     Active Substance: PYRIDOXINE
     Indication: PRODUCT USED FOR UNKNOWN INDICATION
     Route: 065
  11. DEXAMETHASONE. [Concomitant]
     Active Substance: DEXAMETHASONE
     Indication: PRODUCT USED FOR UNKNOWN INDICATION
     Route: 065

REACTIONS (3)
  - Cholelithiasis [Recovered/Resolved]
  - Staphylococcal infection [Recovered/Resolved]
  - Plasma cell myeloma [Unknown]

NARRATIVE: CASE EVENT DATE: 20150414
